FAERS Safety Report 9798208 (Version 1)
Quarter: 2014Q1

REPORT INFORMATION
  Report Type: Spontaneous
  Country: US (occurrence: US)
  Receive Date: 20140106
  Receipt Date: 20140106
  Transmission Date: 20141002
  Serious: Yes (Other)
  Sender: FDA-Public Use
  Company Number: US-PFIZER INC-2014000205

PATIENT
  Age: 67 Year
  Sex: Male
  Weight: 83.9 kg

DRUGS (5)
  1. LIPITOR [Suspect]
     Indication: BLOOD CHOLESTEROL INCREASED
     Dosage: 40 MG, 1X/DAY
  2. LISINOPRIL [Concomitant]
     Indication: HYPERTENSION
     Dosage: 20 MG, UNK
  3. ATENOLOL [Concomitant]
     Indication: HYPERTENSION
     Dosage: 25 MG, DAILY
  4. ZOLPIDEM [Concomitant]
     Indication: ANXIETY
     Dosage: UNK
  5. ZOLPIDEM [Concomitant]
     Indication: PANIC ATTACK

REACTIONS (3)
  - Carotid artery occlusion [Unknown]
  - Cerebrovascular accident [Unknown]
  - Eye disorder [Unknown]
